FAERS Safety Report 13567973 (Version 3)
Quarter: 2017Q3

REPORT INFORMATION
  Report Type: Spontaneous
  Country: US (occurrence: US)
  Receive Date: 20170522
  Receipt Date: 20170712
  Transmission Date: 20171127
  Serious: Yes (Hospitalization, Other)
  Sender: FDA-Public Use
  Company Number: US-GLAXOSMITHKLINE-US2017GSK074997

PATIENT
  Age: 19 Year
  Sex: Male

DRUGS (1)
  1. MALARONE [Suspect]
     Active Substance: ATOVAQUONE\PROGUANIL HYDROCHLORIDE
     Indication: PRODUCT USED FOR UNKNOWN INDICATION
     Dosage: UNK, U
     Dates: start: 20170506

REACTIONS (5)
  - Acute kidney injury [Recovering/Resolving]
  - Rhabdomyolysis [Unknown]
  - Renal impairment [Unknown]
  - Muscle spasms [Unknown]
  - Urine abnormality [Unknown]

NARRATIVE: CASE EVENT DATE: 20170507
